FAERS Safety Report 19916901 (Version 1)
Quarter: 2021Q4

REPORT INFORMATION
  Report Type: Spontaneous
  Country: US (occurrence: US)
  Receive Date: 20211004
  Receipt Date: 20211004
  Transmission Date: 20220304
  Serious: No
  Sender: FDA-Public Use
  Company Number: US-OTSUKA-2020_023270

PATIENT
  Sex: Female

DRUGS (4)
  1. ABILIFY [Suspect]
     Active Substance: ARIPIPRAZOLE
     Indication: Product used for unknown indication
     Dosage: UNK
     Route: 048
  2. ABILIFY MAINTENA [Suspect]
     Active Substance: ARIPIPRAZOLE
     Indication: Product used for unknown indication
     Dosage: UNK
     Route: 065
  3. RISPERDAL [Concomitant]
     Active Substance: RISPERIDONE
     Indication: Product used for unknown indication
     Dosage: UNK
     Route: 065
  4. RISPERDAL CONSTA [Concomitant]
     Active Substance: RISPERIDONE
     Indication: Product used for unknown indication
     Dosage: 50 MG INJECTED EVERY 2 WEEKS
     Route: 065

REACTIONS (14)
  - Abnormal behaviour [Unknown]
  - Behaviour disorder [Unknown]
  - Hot flush [Unknown]
  - Psychomotor hyperactivity [Unknown]
  - Malaise [Unknown]
  - Irritability [Unknown]
  - Musculoskeletal stiffness [Unknown]
  - Hypersensitivity [Unknown]
  - Myalgia [Unknown]
  - Hypersexuality [Unknown]
  - Constipation [Unknown]
  - Anxiety [Unknown]
  - Agitation [Unknown]
  - Insomnia [Unknown]
